FAERS Safety Report 5026547-5 (Version None)
Quarter: 2006Q2

REPORT INFORMATION
  Report Type: 
  Country: None (occurrence: None)
  Receive Date: 20060615
  Receipt Date: 20060606
  Transmission Date: 20061013
  Serious: Yes (Other)
  Sender: FDA-Public Use
  Company Number: US-AVENTIS-200615091US

PATIENT
  Sex: Male
  Weight: 79.54 kg

DRUGS (1)
  1. KETEK [Suspect]
     Indication: PNEUMONIA
     Route: 048
     Dates: start: 20051214, end: 20051219

REACTIONS (1)
  - LIVER FUNCTION TEST ABNORMAL [None]
